FAERS Safety Report 8532372 (Version 3)
Quarter: 2012Q4

REPORT INFORMATION
  Report Type: Report from Study
  Country: JP (occurrence: JP)
  Receive Date: 20120426
  Receipt Date: 20121114
  Transmission Date: 20130627
  Serious: No
  Sender: FDA-Public Use
  Company Number: JP-JNJFOC-20120409293

PATIENT
  Age: 67 Year
  Sex: Male
  Weight: 50 kg

DRUGS (4)
  1. DUROTEP MT [Suspect]
     Indication: PAIN
     Route: 062
     Dates: start: 20111110, end: 20111214
  2. GABAPEN [Concomitant]
     Indication: PAIN
     Route: 048
     Dates: start: 20110721
  3. RIVOTRIL [Concomitant]
     Indication: PAIN
     Route: 048
     Dates: start: 20110721
  4. UNKNOWN MEDICATION [Concomitant]
     Indication: PRODUCT USED FOR UNKNOWN INDICATION
     Route: 048
     Dates: start: 20111124, end: 20111220

REACTIONS (4)
  - Dizziness [Recovering/Resolving]
  - Visual impairment [Recovering/Resolving]
  - Constipation [Recovering/Resolving]
  - Somnolence [Recovering/Resolving]
